FAERS Safety Report 25755295 (Version 1)
Quarter: 2025Q3

REPORT INFORMATION
  Report Type: Spontaneous
  Country: IR (occurrence: IR)
  Receive Date: 20250903
  Receipt Date: 20250903
  Transmission Date: 20251021
  Serious: Yes (Life-Threatening, Hospitalization, Other)
  Sender: GLAND PHARMA LTD
  Company Number: IR-GLANDPHARMA-IR-2025GLNLIT01761

PATIENT
  Age: 50 Year
  Sex: Female

DRUGS (1)
  1. MAGNESIUM SULFATE [Suspect]
     Active Substance: MAGNESIUM SULFATE
     Indication: Hypoglycaemia
     Route: 065

REACTIONS (11)
  - Loss of consciousness [Recovered/Resolved]
  - Toxicity to various agents [Recovered/Resolved]
  - Hypokalaemia [Recovered/Resolved]
  - Hypermagnesaemia [Recovered/Resolved]
  - Hyponatraemia [Recovered/Resolved]
  - Flushing [Recovered/Resolved]
  - Hypophosphataemia [Recovered/Resolved]
  - Hypocalcaemia [Recovered/Resolved]
  - Overdose [Recovering/Resolving]
  - Wrong product administered [Unknown]
  - Product use in unapproved indication [Unknown]
